FAERS Safety Report 5160391-3 (Version None)
Quarter: 2006Q4

REPORT INFORMATION
  Report Type: 
  Country: None (occurrence: None)
  Receive Date: 20061121
  Receipt Date: 20061114
  Transmission Date: 20070319
  Serious: Yes (Death)
  Sender: FDA-Public Use
  Company Number: 163-21880-06020413

PATIENT
  Age: 71 Year
  Sex: Female

DRUGS (11)
  1. REVLIMID [Suspect]
     Indication: MYELODYSPLASTIC SYNDROME
     Dosage: SEE IMAGE, ORAL
     Route: 048
     Dates: start: 20060101, end: 20060101
  2. REVLIMID [Suspect]
     Indication: MYELODYSPLASTIC SYNDROME
     Dosage: SEE IMAGE, ORAL
     Route: 048
     Dates: start: 20060209, end: 20060220
  3. REVLIMID [Suspect]
     Indication: MYELODYSPLASTIC SYNDROME
     Dosage: SEE IMAGE, ORAL
     Route: 048
     Dates: start: 20060101, end: 20060614
  4. LOPRESSOR [Concomitant]
  5. INSULIN (INSULIN) [Concomitant]
  6. ZOLOFT [Concomitant]
  7. IMDUR [Concomitant]
  8. MONOPRIL [Concomitant]
  9. PRAVACHOL [Concomitant]
  10. TRAMADOL HCL [Concomitant]
  11. VALPRO (VALPROATE SODIUM) [Concomitant]

REACTIONS (5)
  - PLATELET COUNT DECREASED [None]
  - PRURITUS [None]
  - RASH [None]
  - RASH GENERALISED [None]
  - RASH MACULO-PAPULAR [None]
